FAERS Safety Report 19010447 (Version 2)
Quarter: 2021Q2

REPORT INFORMATION
  Report Type: Other
  Country: US (occurrence: US)
  Receive Date: 20210315
  Receipt Date: 20210422
  Transmission Date: 20210717
  Serious: Yes (Other)
  Sender: FDA-Public Use
  Company Number: US-ROCHE-2785837

PATIENT

DRUGS (1)
  1. RITUXIMAB. [Suspect]
     Active Substance: RITUXIMAB
     Indication: LYMPHOMA
     Route: 065

REACTIONS (16)
  - Pneumonia [Unknown]
  - Aspartate aminotransferase increased [Unknown]
  - Hypertriglyceridaemia [Unknown]
  - Neutropenia [Unknown]
  - Rash maculo-papular [Unknown]
  - Thrombocytopenia [Unknown]
  - Hypertension [Unknown]
  - Hypercalcaemia [Unknown]
  - Lipase increased [Unknown]
  - Electrocardiogram QT prolonged [Unknown]
  - Leukopenia [Unknown]
  - Alanine aminotransferase increased [Unknown]
  - Blood bilirubin increased [Unknown]
  - Hyperglycaemia [Unknown]
  - Amylase increased [Unknown]
  - Rash [Unknown]
